FAERS Safety Report 4644344-7 (Version None)
Quarter: 2005Q2

REPORT INFORMATION
  Report Type: 
  Country: None (occurrence: None)
  Receive Date: 20050331
  Receipt Date: 20041227
  Transmission Date: 20051028
  Serious: No
  Sender: FDA-Public Use
  Company Number: 04P-163-0284686-00

PATIENT
  Sex: Male

DRUGS (4)
  1. HUMIRA [Suspect]
     Dosage: 40 MG, 1 IN 2 WK, SUBCUTANEOUS
     Route: 058
  2. METHOTREXATE SODIUM [Concomitant]
  3. PREDNISONE TAB [Concomitant]
  4. DARVOCET [Concomitant]

REACTIONS (3)
  - NAUSEA [None]
  - PAIN [None]
  - PYREXIA [None]
